FAERS Safety Report 10628307 (Version 1)
Quarter: 2014Q4

REPORT INFORMATION
  Report Type: Spontaneous
  Country: US (occurrence: US)
  Receive Date: 20141205
  Receipt Date: 20141205
  Transmission Date: 20150529
  Serious: Yes (Other)
  Sender: FDA-Public Use
  Company Number: US-BRISTOL-MYERS SQUIBB COMPANY-21649777

PATIENT
  Age: 85 Year
  Sex: Male
  Weight: 87.07 kg

DRUGS (2)
  1. COUMADIN [Suspect]
     Active Substance: WARFARIN SODIUM
     Dates: start: 200301
  2. AMIODARONE [Suspect]
     Active Substance: AMIODARONE

REACTIONS (1)
  - Rectal haemorrhage [Recovered/Resolved]
